FAERS Safety Report 24925844 (Version 2)
Quarter: 2025Q2

REPORT INFORMATION
  Report Type: Spontaneous
  Country: IL (occurrence: IL)
  Receive Date: 20250205
  Receipt Date: 20250403
  Transmission Date: 20250716
  Serious: Yes (Death)
  Sender: JOHNSON AND JOHNSON
  Company Number: IL-JNJFOC-20250192385

PATIENT
  Age: 66 Year
  Sex: Male
  Weight: 92 kg

DRUGS (21)
  1. VELCADE [Suspect]
     Active Substance: BORTEZOMIB
     Indication: Primary amyloidosis
     Route: 048
     Dates: start: 20241210, end: 20241210
  2. DARZALEX [Suspect]
     Active Substance: DARATUMUMAB
     Indication: Primary amyloidosis
     Route: 065
     Dates: start: 20241210, end: 20250114
  3. CYCLOPHOSPHAMIDE [Suspect]
     Active Substance: CYCLOPHOSPHAMIDE
     Indication: Primary amyloidosis
     Route: 065
     Dates: start: 20241210, end: 20250114
  4. SPIRONOLACTONE [Suspect]
     Active Substance: SPIRONOLACTONE
     Dates: start: 2024, end: 20250107
  5. LAMOTRIGINE [Concomitant]
     Active Substance: LAMOTRIGINE
     Dates: start: 2016
  6. ASPIRIN [Concomitant]
     Active Substance: ASPIRIN
     Dates: start: 2022
  7. ASPIRIN [Concomitant]
     Active Substance: ASPIRIN
     Dates: start: 2022
  8. EMPAGLIFLOZIN [Concomitant]
     Active Substance: EMPAGLIFLOZIN
  9. ATORVASTATIN CALCIUM [Concomitant]
     Active Substance: ATORVASTATIN CALCIUM
  10. OMEPRAZOLE [Concomitant]
     Active Substance: OMEPRAZOLE
  11. FUROSEMIDE [Concomitant]
     Active Substance: FUROSEMIDE
     Dates: start: 2024
  12. BISOPROLOL FUMARATE [Concomitant]
     Active Substance: BISOPROLOL FUMARATE
     Dates: start: 2024
  13. CLONAZEPAM [Concomitant]
     Active Substance: CLONAZEPAM
  14. CIPROFLOXACIN [Concomitant]
     Active Substance: CIPROFLOXACIN
  15. VITAMIN B12 [Concomitant]
     Active Substance: CYANOCOBALAMIN
  16. VITAMIN D3 [Concomitant]
     Active Substance: CHOLECALCIFEROL
  17. IRON [Concomitant]
     Active Substance: IRON
  18. ONDANSETRON [Concomitant]
     Active Substance: ONDANSETRON
  19. EMPAGLIFLOZIN [Concomitant]
     Active Substance: EMPAGLIFLOZIN
     Dates: start: 2024
  20. LIPITOR [Concomitant]
     Active Substance: ATORVASTATIN CALCIUM
     Dates: start: 2024
  21. BISOPROLOL FUMARATE [Concomitant]
     Active Substance: BISOPROLOL FUMARATE
     Dates: start: 2024

REACTIONS (4)
  - Arrhythmia [Fatal]
  - Death [Fatal]
  - Off label use [Unknown]
  - Off label use [Unknown]

NARRATIVE: CASE EVENT DATE: 20241210
